FAERS Safety Report 5444287-5 (Version None)
Quarter: 2007Q3

REPORT INFORMATION
  Report Type: 
  Country: None (occurrence: None)
  Receive Date: 20070904
  Receipt Date: 20070904
  Transmission Date: 20080115
  Serious: Yes (Hospitalization)
  Sender: FDA-Public Use
  Company Number: None

PATIENT
  Sex: Female

DRUGS (8)
  1. REVLIMID [Suspect]
     Indication: MYELODYSPLASTIC SYNDROME
     Dosage: 10MG DAILY PO
     Route: 048
     Dates: start: 20070223, end: 20070317
  2. LANTUS [Concomitant]
  3. LISINOPRIL [Concomitant]
  4. ATENOLOL [Concomitant]
  5. NIFEDIPINE [Concomitant]
  6. LASIX [Concomitant]
  7. NORTRIPTYLINE HCL [Concomitant]
  8. ASPIRIN [Concomitant]

REACTIONS (8)
  - ANAEMIA [None]
  - CHEST PAIN [None]
  - CONDITION AGGRAVATED [None]
  - DISEASE PROGRESSION [None]
  - HYPOGLYCAEMIA [None]
  - LOBAR PNEUMONIA [None]
  - PANCYTOPENIA [None]
  - RENAL FAILURE ACUTE [None]
